FAERS Safety Report 15906613 (Version 1)
Quarter: 2019Q1

REPORT INFORMATION
  Report Type: Spontaneous
  Country: CN (occurrence: CN)
  Receive Date: 20190204
  Receipt Date: 20190204
  Transmission Date: 20190417
  Serious: Yes (Other)
  Sender: FDA-Public Use
  Company Number: CN-SA-2019SA029984

PATIENT
  Age: 82 Year
  Sex: Female
  Weight: 62 kg

DRUGS (2)
  1. ZOLPIDEM TARTRATE. [Suspect]
     Active Substance: ZOLPIDEM TARTRATE
     Indication: SLEEP DISORDER
     Dosage: 10 MG, QD
     Route: 048
     Dates: start: 20181021, end: 20181022
  2. LEVOFLOXACIN LACTATE AND SODIUM CHLORIDE [Suspect]
     Active Substance: LEVOFLOXACIN LACTATE
     Indication: BRONCHITIS
     Dosage: 0.5 G, QD
     Route: 041
     Dates: start: 20181020, end: 20181022

REACTIONS (2)
  - Confusional state [None]
  - Delirium [Recovering/Resolving]

NARRATIVE: CASE EVENT DATE: 20181022
